APPROVED DRUG PRODUCT: ETODOLAC
Active Ingredient: ETODOLAC
Strength: 400MG
Dosage Form/Route: TABLET;ORAL
Application: A074903 | Product #001 | TE Code: AB
Applicant: PANGEA PHARMACEUTICALS LLC
Approved: Apr 11, 1997 | RLD: No | RS: No | Type: RX